FAERS Safety Report 9284695 (Version 1)
Quarter: 2013Q2

REPORT INFORMATION
  Report Type: Spontaneous
  Country: US (occurrence: US)
  Receive Date: 20130513
  Receipt Date: 20130513
  Transmission Date: 20140414
  Serious: No
  Sender: FDA-Public Use
  Company Number: US-009507513-1305USA004429

PATIENT
  Age: 25 Year
  Sex: Male

DRUGS (2)
  1. SAPHRIS [Suspect]
     Indication: SCHIZOPHRENIA, PARANOID TYPE
     Dosage: 5 MG, QD
     Route: 060
  2. SAPHRIS [Suspect]
     Dosage: 10 MG, QD
     Route: 060
     Dates: start: 20130415, end: 20130422

REACTIONS (3)
  - Testicular pain [Recovering/Resolving]
  - Drug ineffective [Unknown]
  - Inappropriate schedule of drug administration [Unknown]
